FAERS Safety Report 5885370-X (Version None)
Quarter: 2008Q3

REPORT INFORMATION
  Report Type: 
  Country: None (occurrence: None)
  Receive Date: 20080916
  Receipt Date: 20080909
  Transmission Date: 20090109
  Serious: Yes (Hospitalization)
  Sender: FDA-Public Use
  Company Number: US-PFIZER INC-2008075628

PATIENT
  Age: 48 Year
  Sex: Male
  Weight: 71.4 kg

DRUGS (13)
  1. MARAVIROC [Suspect]
     Indication: HIV TEST POSITIVE
     Route: 048
     Dates: start: 20080421, end: 20080903
  2. DARUNAVIR [Suspect]
     Indication: HIV TEST POSITIVE
     Route: 048
     Dates: start: 20080421, end: 20080903
  3. RALTEGRAVIR [Suspect]
     Indication: HIV TEST POSITIVE
     Route: 048
     Dates: start: 20080421, end: 20080903
  4. NORVIR [Suspect]
     Indication: HIV TEST POSITIVE
     Route: 048
     Dates: start: 20080421, end: 20080903
  5. HEPARIN [Concomitant]
     Dosage: TEXT:DRIP
     Route: 042
  6. ZETIA [Concomitant]
     Route: 048
     Dates: start: 20070823, end: 20080205
  7. IMDUR [Concomitant]
     Route: 048
     Dates: start: 20061014
  8. TOPROL-XL [Concomitant]
     Route: 048
     Dates: start: 20041129
  9. PLAVIX [Concomitant]
     Route: 048
     Dates: start: 20041129
  10. ALL OTHER THERAPEUTIC PRODUCTS [Concomitant]
     Route: 048
     Dates: start: 20041129
  11. ALTACE [Concomitant]
     Route: 048
     Dates: start: 20041129
  12. ALL OTHER THERAPEUTIC PRODUCTS [Concomitant]
     Route: 048
     Dates: start: 20040301
  13. TESTOSTERONE [Concomitant]
     Dates: start: 19981228

REACTIONS (1)
  - ANGINA UNSTABLE [None]
